FAERS Safety Report 7151698-9 (Version None)
Quarter: 2010Q4

REPORT INFORMATION
  Report Type: 
  Country: None (occurrence: None)
  Receive Date: 20101124
  Receipt Date: 20101115
  Transmission Date: 20110411
  Serious: Yes (Death, Hospitalization)
  Sender: FDA-Public Use
  Company Number: UTC-002353

PATIENT
  Age: 60 Year
  Sex: Female

DRUGS (4)
  1. REMODULIN [Suspect]
     Dosage: 126.72 UG/KG (0.088 UG/KG, 1 IN 1 MIN), INTRAVENOUS
     Route: 042
     Dates: start: 20091113
  2. REVATIO [Concomitant]
  3. TRACLEER [Concomitant]
  4. DIURETICS (DIURETICS) [Concomitant]

REACTIONS (1)
  - DEATH [None]
